FAERS Safety Report 12616385 (Version 2)
Quarter: 2016Q3

REPORT INFORMATION
  Report Type: Report from Study
  Country: CH (occurrence: CH)
  Receive Date: 20160802
  Receipt Date: 20160915
  Transmission Date: 20161109
  Serious: Yes (Hospitalization)
  Sender: FDA-Public Use
  Company Number: CH-CELGENEUS-CHE-2015094373

PATIENT
  Age: 63 Year
  Sex: Female

DRUGS (4)
  1. VANCOMYCIN [Suspect]
     Active Substance: VANCOMYCIN
     Indication: INFECTION
     Route: 065
     Dates: start: 20150829, end: 20150910
  2. REVLIMID [Suspect]
     Active Substance: LENALIDOMIDE
     Indication: ACUTE MYELOID LEUKAEMIA
     Dosage: 15 MILLIGRAM
     Route: 048
     Dates: start: 20150819, end: 20150908
  3. IDARUBICIN [Suspect]
     Active Substance: IDARUBICIN
     Indication: ACUTE MYELOID LEUKAEMIA
     Route: 065
     Dates: start: 20150819, end: 20150821
  4. CYTARABIN [Suspect]
     Active Substance: CYTARABINE
     Indication: ACUTE MYELOID LEUKAEMIA
     Dosage: 24.7 MILLIGRAM
     Route: 065
     Dates: start: 20150819, end: 20150825

REACTIONS (4)
  - Renal failure [Unknown]
  - Blood bilirubin increased [Unknown]
  - Hepatic failure [Recovered/Resolved]
  - Coma scale abnormal [Unknown]

NARRATIVE: CASE EVENT DATE: 20150907
